FAERS Safety Report 4522090-8 (Version None)
Quarter: 2004Q4

REPORT INFORMATION
  Report Type: 
  Country: None (occurrence: None)
  Receive Date: 20041209
  Receipt Date: 20041207
  Transmission Date: 20050328
  Serious: Yes (Other)
  Sender: FDA-Public Use
  Company Number: CA-MERCK-0412CAN00034

PATIENT
  Age: 39 Year
  Sex: Female

DRUGS (2)
  1. VIOXX [Suspect]
     Indication: TINNITUS
     Route: 048
  2. VIOXX [Suspect]
     Indication: ARTHROPATHY
     Route: 048

REACTIONS (3)
  - BLOOD PRESSURE INCREASED [None]
  - HYPERTENSION [None]
  - MYOCARDIAL INFARCTION [None]
